FAERS Safety Report 7033430-2 (Version None)
Quarter: 2010Q4

REPORT INFORMATION
  Report Type: 
  Country: None (occurrence: None)
  Receive Date: 20101007
  Receipt Date: 20100616
  Transmission Date: 20110411
  Serious: Yes (Other)
  Sender: FDA-Public Use
  Company Number: CHPA2010US10071

PATIENT
  Age: 63 Year
  Sex: Male
  Weight: 79.365 kg

DRUGS (3)
  1. DENAVIR (NCH) [Suspect]
     Indication: HYPOAESTHESIA ORAL
     Dosage: UNK, QID
     Route: 061
     Dates: start: 20100605
  2. DENAVIR (NCH) [Suspect]
     Indication: PARAESTHESIA ORAL
  3. DENAVIR (NCH) [Suspect]
     Indication: STOMATITIS

REACTIONS (5)
  - CHOLELITHIASIS [None]
  - DRUG INEFFECTIVE FOR UNAPPROVED INDICATION [None]
  - DRY MOUTH [None]
  - HEPATIC ENZYME INCREASED [None]
  - INTENTIONAL DRUG MISUSE [None]
